FAERS Safety Report 6438551-0 (Version None)
Quarter: 2009Q4

REPORT INFORMATION
  Report Type: 
  Country: None (occurrence: None)
  Receive Date: 20091112
  Receipt Date: 20090828
  Transmission Date: 20100525
  Serious: No
  Sender: FDA-Public Use
  Company Number: US-ALLERGAN-0912109US

PATIENT
  Age: 90 Year
  Sex: Male

DRUGS (4)
  1. COMBIGAN [Suspect]
     Indication: GLAUCOMA
     Dosage: 1 GTT, BID
     Route: 047
     Dates: start: 20080101
  2. XALATAN [Concomitant]
     Indication: GLAUCOMA
  3. AZOPT [Concomitant]
     Indication: GLAUCOMA
  4. LOTEMAX [Concomitant]
     Indication: DRUG USE FOR UNKNOWN INDICATION

REACTIONS (2)
  - BREAST MASS [None]
  - FATIGUE [None]
